FAERS Safety Report 20069977 (Version 2)
Quarter: 2021Q4

REPORT INFORMATION
  Report Type: Spontaneous
  Country: HU (occurrence: HU)
  Receive Date: 20211115
  Receipt Date: 20211130
  Transmission Date: 20220303
  Serious: Yes (Life-Threatening, Other)
  Sender: FDA-Public Use
  Company Number: HU-002147023-NVSC2021HU184467

PATIENT
  Sex: Female

DRUGS (6)
  1. AMLODIPINE BESYLATE\VALSARTAN [Suspect]
     Active Substance: AMLODIPINE BESYLATE\VALSARTAN
     Indication: Product used for unknown indication
     Dosage: UNK
     Route: 065
  2. DIOVAN [Suspect]
     Active Substance: VALSARTAN
     Indication: Hypertension
     Dosage: 160 MILLIGRAM
     Route: 065
  3. ROSUVASTATIN CALCIUM [Suspect]
     Active Substance: ROSUVASTATIN CALCIUM
     Indication: Vasoconstriction
     Dosage: UNK
     Route: 065
  4. CAPTOPRIL [Suspect]
     Active Substance: CAPTOPRIL
     Indication: Hypertension
     Dosage: UNK
  5. ASPIRIN [Suspect]
     Active Substance: ASPIRIN
     Indication: Product used for unknown indication
     Dosage: UNK
  6. HYDROCHLOROTHIAZIDE\VALSARTAN [Suspect]
     Active Substance: HYDROCHLOROTHIAZIDE\VALSARTAN
     Indication: Product used for unknown indication
     Dosage: 160/120 MG

REACTIONS (49)
  - Infarction [Unknown]
  - Hypertension [Not Recovered/Not Resolved]
  - Blood pressure fluctuation [Unknown]
  - Deafness [Recovered/Resolved]
  - Blood cholesterol increased [Unknown]
  - Blood pressure increased [Unknown]
  - Visual impairment [Recovering/Resolving]
  - Hepatic cyst [Unknown]
  - Pulmonary oedema [Unknown]
  - Hepatic neoplasm [Unknown]
  - Weight increased [Unknown]
  - Heart rate abnormal [Unknown]
  - Hypercoagulation [Unknown]
  - Oedema [Unknown]
  - Adverse drug reaction [Unknown]
  - Muscular weakness [Unknown]
  - Contusion [Unknown]
  - Vasoconstriction [Unknown]
  - Gait disturbance [Unknown]
  - Flatulence [Unknown]
  - Hypoacusis [Recovering/Resolving]
  - Muscle strain [Unknown]
  - Pain [Unknown]
  - Oedema peripheral [Unknown]
  - Fatigue [Unknown]
  - Dyspnoea [Unknown]
  - Myalgia [Unknown]
  - Arthralgia [Unknown]
  - Diarrhoea [Unknown]
  - Heart rate irregular [Unknown]
  - Abdominal pain [Unknown]
  - Palpitations [Unknown]
  - Asthenia [Unknown]
  - Constipation [Unknown]
  - Headache [Unknown]
  - Insomnia [Unknown]
  - Vision blurred [Not Recovered/Not Resolved]
  - Pollakiuria [Unknown]
  - Depression [Unknown]
  - Hypotension [Unknown]
  - Drug hypersensitivity [Unknown]
  - Arthropathy [Unknown]
  - Abdominal discomfort [Unknown]
  - Contusion [Unknown]
  - General physical condition abnormal [Unknown]
  - Drug intolerance [Unknown]
  - Ill-defined disorder [Unknown]
  - Haemorrhoids [Unknown]
  - Rectal polyp [Unknown]

NARRATIVE: CASE EVENT DATE: 20210701
